FAERS Safety Report 15333823 (Version 1)
Quarter: 2018Q3

REPORT INFORMATION
  Report Type: Spontaneous
  Country: US (occurrence: US)
  Receive Date: 20180825
  Receipt Date: 20180825
  Transmission Date: 20181010
  Serious: No
  Sender: FDA-Public Use
  Company Number: None

PATIENT
  Age: 57 Year
  Sex: Female
  Weight: 67.5 kg

DRUGS (2)
  1. LEVOTHYROXINE. [Concomitant]
     Active Substance: LEVOTHYROXINE
  2. DYSPORT [Suspect]
     Active Substance: ABOBOTULINUMTOXINA
     Indication: SKIN WRINKLING
     Dosage: ?          OTHER STRENGTH:75 UNITS;QUANTITY:3 INJECTION(S);?
     Route: 030
     Dates: start: 20180630, end: 20180714

REACTIONS (13)
  - Drug ineffective [None]
  - Influenza like illness [None]
  - Fatigue [None]
  - Vomiting [None]
  - Malaise [None]
  - Injection site reaction [None]
  - Asthenia [None]
  - Dizziness [None]
  - Nausea [None]
  - Viral infection [None]
  - Heart rate increased [None]
  - Headache [None]
  - Migraine [None]

NARRATIVE: CASE EVENT DATE: 20180704
